FAERS Safety Report 11587659 (Version 2)
Quarter: 2015Q4

REPORT INFORMATION
  Report Type: Spontaneous
  Country: US (occurrence: None)
  Receive Date: 20151001
  Receipt Date: 20151105
  Transmission Date: 20160304
  Serious: Yes (Hospitalization, Other)
  Sender: FDA-Public Use
  Company Number: US-MDT-ADR-2015-01882

PATIENT
  Age: 29 Year
  Sex: Female

DRUGS (2)
  1. GABLOFEN [Suspect]
     Active Substance: BACLOFEN
  2. LIORESAL [Suspect]
     Active Substance: BACLOFEN
     Indication: MUSCLE SPASTICITY
     Dosage: 560 MCG/DAY

REACTIONS (2)
  - Pruritus [None]
  - Epilepsy [None]
